FAERS Safety Report 8505281-0 (Version None)
Quarter: 2012Q3

REPORT INFORMATION
  Report Type: 
  Country: None (occurrence: None)
  Receive Date: 20120712
  Receipt Date: 20120703
  Transmission Date: 20120928
  Serious: Yes (Hospitalization, Other)
  Sender: FDA-Public Use
  Company Number: US-BAYER-2012-019461

PATIENT
  Age: 34 Year
  Sex: Female
  Weight: 90.703 kg

DRUGS (15)
  1. YASMIN [Suspect]
     Indication: CONTRACEPTION
     Dosage: UNK
     Dates: start: 20010214, end: 20080627
  2. YASMIN [Suspect]
     Dosage: UNK
     Dates: start: 20090305, end: 20090324
  3. CALCIUM [Concomitant]
     Dosage: UNK
     Dates: start: 20091114, end: 20091204
  4. OMEPRAZOLE [Concomitant]
     Dosage: 20 MG, UNK
     Dates: start: 20090912
  5. ALIMENTARY TRACT AND METABOLISM [Concomitant]
     Indication: ABDOMINAL DISCOMFORT
     Dosage: UNK
     Dates: start: 20091001
  6. DROSPIRENONE AND ETHINYL ESTRADIOL [Suspect]
     Indication: CONTRACEPTION
     Dosage: UNK
     Dates: start: 20080718, end: 20090228
  7. FISH OIL [Concomitant]
     Dosage: UNK
     Dates: start: 20091114, end: 20091204
  8. DROSPIRENONE AND ETHINYL ESTRADIOL [Suspect]
     Dosage: UNK
     Dates: start: 20090324, end: 20100108
  9. B COMPLEX [B3,B6,B2,B1 HCL] [Concomitant]
     Dosage: UNK
     Dates: start: 20091114, end: 20091204
  10. CALCIUM CARBONATE [Concomitant]
     Indication: ABDOMINAL DISCOMFORT
     Dosage: UNK 1 TABLET DAILY
     Dates: start: 20091114, end: 20091204
  11. MULTI-VITAMINS [Concomitant]
     Dosage: UNK
     Dates: start: 20091114, end: 20091204
  12. GABA [Concomitant]
     Indication: SEDATIVE THERAPY
     Dosage: 1 TABLET DAILY
     Dates: start: 20091114, end: 20091204
  13. YASMIN [Suspect]
     Dosage: UNK
     Dates: start: 20100205, end: 20100429
  14. HYDROCODONE BITARTRATE [Concomitant]
     Dosage: UNK
     Dates: start: 20090912
  15. ASCORBIC ACID [Concomitant]
     Dosage: UNK
     Dates: start: 20091114, end: 20091204

REACTIONS (9)
  - BILIARY COLIC [None]
  - BILIARY DYSKINESIA [None]
  - ABDOMINAL PAIN UPPER [None]
  - PAIN [None]
  - VOMITING [None]
  - GASTRITIS [None]
  - NAUSEA [None]
  - INJURY [None]
  - ABDOMINAL DISTENSION [None]
